FAERS Safety Report 13595141 (Version 1)
Quarter: 2017Q2

REPORT INFORMATION
  Report Type: Spontaneous
  Country: GB (occurrence: GB)
  Receive Date: 20170531
  Receipt Date: 20170531
  Transmission Date: 20170830
  Serious: Yes (Other)
  Sender: FDA-Public Use
  Company Number: GB-TORRENT-00015313

PATIENT
  Age: 16 Year
  Sex: Female
  Weight: 55 kg

DRUGS (2)
  1. LAMOTRIGINE. [Suspect]
     Active Substance: LAMOTRIGINE
  2. QUETIAPINE. [Concomitant]
     Active Substance: QUETIAPINE

REACTIONS (6)
  - Somnolence [Recovering/Resolving]
  - Tachycardia [Recovering/Resolving]
  - Stupor [Recovering/Resolving]
  - Confusional state [Recovering/Resolving]
  - Disorientation [Recovering/Resolving]
  - Apathy [Recovering/Resolving]

NARRATIVE: CASE EVENT DATE: 20170415
